FAERS Safety Report 8618133-2 (Version None)
Quarter: 2012Q3

REPORT INFORMATION
  Report Type: 
  Country: None (occurrence: None)
  Receive Date: 20120824
  Receipt Date: 20111223
  Transmission Date: 20120928
  Serious: Yes (Hospitalization)
  Sender: FDA-Public Use
  Company Number: US-ASTRAZENECA-2011SE49540

PATIENT
  Age: 62 Year
  Sex: Male

DRUGS (4)
  1. SYSTEMIC CORTICOSTEROIDS [Concomitant]
     Dosage: FOR 6 MONTHS TO 1 YEAR
  2. SYMBICORT [Suspect]
     Indication: ASTHMA
     Route: 055
     Dates: start: 20080101
  3. PROVENTIL [Concomitant]
     Dates: start: 20080101
  4. PREDNISOLONE [Concomitant]
     Indication: ASTHMA
     Route: 048
     Dates: start: 20110110

REACTIONS (2)
  - EYE DISORDER [None]
  - CATARACT [None]
